FAERS Safety Report 8965004 (Version 2)
Quarter: 2013Q1

REPORT INFORMATION
  Report Type: Spontaneous
  Country: JP (occurrence: JP)
  Receive Date: 20121214
  Receipt Date: 20130118
  Transmission Date: 20140127
  Serious: Yes (Other)
  Sender: FDA-Public Use
  Company Number: JP-ASTRAZENECA-2012SE92230

PATIENT
  Age: 40 Year
  Sex: Female
  Weight: 30 kg

DRUGS (4)
  1. DIPRIVAN [Suspect]
     Indication: GENERAL ANAESTHESIA
     Dosage: GENERIC
     Route: 042
  2. FENTANYL [Concomitant]
     Indication: GENERAL ANAESTHESIA
     Route: 042
  3. LOCAL ANESTHETICS [Concomitant]
     Route: 065
  4. SEVOFLURANE [Concomitant]
     Route: 065

REACTIONS (2)
  - Respiratory acidosis [Unknown]
  - Dyspnoea [Unknown]
